FAERS Safety Report 8904582 (Version 1)
Quarter: 2012Q4

REPORT INFORMATION
  Report Type: 
  Country: AU (occurrence: AU)
  Receive Date: 20121109
  Receipt Date: 20121109
  Transmission Date: 20130627
  Serious: Yes (Hospitalization)
  Sender: FDA-Public Use
  Company Number: AU-009507513-1211AUS002652

PATIENT

DRUGS (2)
  1. RIBAVIRIN [Suspect]
     Dosage: 6 dose, unspecified
  2. PEGASYS [Suspect]
     Dosage: 1 Dose (unspecified), qw

REACTIONS (1)
  - Deep vein thrombosis [Unknown]
